APPROVED DRUG PRODUCT: OLMESARTAN MEDOXOMIL
Active Ingredient: OLMESARTAN MEDOXOMIL
Strength: 40MG
Dosage Form/Route: TABLET;ORAL
Application: A205499 | Product #003 | TE Code: AB
Applicant: HETERO LABS LTD UNIT V
Approved: Oct 31, 2024 | RLD: No | RS: No | Type: RX